FAERS Safety Report 15595080 (Version 1)
Quarter: 2018Q4

REPORT INFORMATION
  Report Type: Spontaneous
  Country: FR (occurrence: FR)
  Receive Date: 20181106
  Receipt Date: 20181106
  Transmission Date: 20190205
  Serious: Yes (Hospitalization)
  Sender: FDA-Public Use
  Company Number: PHHY2018FR147590

PATIENT
  Age: 57 Year
  Sex: Female
  Weight: 61 kg

DRUGS (11)
  1. INEXIUM [Suspect]
     Active Substance: ESOMEPRAZOLE
     Indication: PROPHYLAXIS AGAINST GASTROINTESTINAL ULCER
     Dosage: 40 MG, UNK
     Route: 042
     Dates: start: 20181006, end: 20181006
  2. TEMESTA [LORAZEPAM] [Suspect]
     Active Substance: LORAZEPAM
     Indication: ANXIETY
     Dosage: 0.5 MG, QD
     Route: 048
     Dates: start: 20181006, end: 20181007
  3. THYMOGLOBULIN [Suspect]
     Active Substance: LAPINE T-LYMPHOCYTE IMMUNE GLOBULIN
     Indication: PROPHYLAXIS AGAINST TRANSPLANT REJECTION
     Route: 042
  4. SPASFON (PHLOROGLUCINOL\TRIMETHYLPHLOROGLUCINOL) [Suspect]
     Active Substance: PHLOROGLUCINOL\1,3,5-TRIMETHOXYBENZENE
     Indication: GAIT DISTURBANCE
     Dosage: 3 DF, QD
     Route: 042
     Dates: start: 20181006, end: 20181007
  5. PARACETAMOL [Suspect]
     Active Substance: ACETAMINOPHEN
     Indication: GAIT DISTURBANCE
     Dosage: 3 G, QD
     Route: 042
     Dates: start: 20181006, end: 20181007
  6. OMEPRAZOLE. [Suspect]
     Active Substance: OMEPRAZOLE
     Indication: GASTRIC ULCER
     Dosage: 40 MG, QD
     Route: 048
     Dates: start: 20181007, end: 20181007
  7. RENVELA [Suspect]
     Active Substance: SEVELAMER CARBONATE
     Indication: BLOOD PHOSPHORUS ABNORMAL
     Dosage: 4.8 G, UNK
     Route: 048
     Dates: start: 20181006, end: 20181007
  8. FUROSEMIDE. [Suspect]
     Active Substance: FUROSEMIDE
     Indication: PRODUCT USED FOR UNKNOWN INDICATION
     Route: 042
  9. NEFOPAM [Suspect]
     Active Substance: NEFOPAM
     Indication: GAIT DISTURBANCE
     Dosage: 80 MG, UNK
     Route: 042
  10. IMOVANE [Suspect]
     Active Substance: ZOPICLONE
     Indication: SLEEP DISORDER
     Dosage: 3.75 MG, QD
     Route: 048
     Dates: start: 20181006, end: 20181007
  11. POLARAMINE [Suspect]
     Active Substance: DEXCHLORPHENIRAMINE MALEATE
     Indication: ALLERGY PROPHYLAXIS
     Route: 042

REACTIONS (2)
  - Lung disorder [Recovering/Resolving]
  - Pyrexia [Recovered/Resolved]

NARRATIVE: CASE EVENT DATE: 20181006
